FAERS Safety Report 7387845-3 (Version None)
Quarter: 2011Q1

REPORT INFORMATION
  Report Type: 
  Country: None (occurrence: None)
  Receive Date: 20110331
  Receipt Date: 20110322
  Transmission Date: 20110831
  Serious: Yes (Hospitalization, Disabling)
  Sender: FDA-Public Use
  Company Number: US-MERCK-1001USA00054

PATIENT
  Age: 69 Year
  Sex: Female
  Weight: 65 kg

DRUGS (8)
  1. FOSAMAX [Suspect]
     Indication: OSTEOPENIA
     Route: 048
     Dates: start: 19980101, end: 20070101
  2. FOSAMAX [Suspect]
     Route: 048
     Dates: start: 20040101, end: 20080501
  3. FOSAMAX [Suspect]
     Route: 048
     Dates: start: 19980101, end: 20040101
  4. ATENOLOL [Concomitant]
     Route: 065
     Dates: start: 19960101
  5. COSOPT [Concomitant]
     Route: 065
     Dates: start: 19960101
  6. FOSAMAX [Suspect]
     Indication: OSTEOPOROSIS
     Route: 048
     Dates: start: 19980101, end: 20070101
  7. FOSAMAX [Suspect]
     Route: 048
     Dates: start: 19980101, end: 20040101
  8. FOSAMAX [Suspect]
     Route: 048
     Dates: start: 20040101, end: 20080501

REACTIONS (26)
  - KYPHOSIS [None]
  - ANAEMIA [None]
  - PAIN [None]
  - BACK PAIN [None]
  - DIZZINESS [None]
  - FEMUR FRACTURE [None]
  - LOW TURNOVER OSTEOPATHY [None]
  - HAEMORRHOIDS [None]
  - ARTERIOSCLEROSIS CORONARY ARTERY [None]
  - GASTRITIS [None]
  - COUGH [None]
  - FALL [None]
  - OBESITY [None]
  - EXPOSURE TO CONTAMINATED AIR [None]
  - CORONARY ARTERY DISEASE [None]
  - UMBILICAL HERNIA [None]
  - LUNG DISORDER [None]
  - NORMOCHROMIC NORMOCYTIC ANAEMIA [None]
  - ANXIETY [None]
  - PALPITATIONS [None]
  - DEPRESSION [None]
  - RENAL CYST [None]
  - OSTEOARTHRITIS [None]
  - DYSLIPIDAEMIA [None]
  - CATARACT [None]
  - DIVERTICULUM INTESTINAL [None]
